FAERS Safety Report 8472262-5 (Version None)
Quarter: 2012Q2

REPORT INFORMATION
  Report Type: 
  Country: None (occurrence: None)
  Receive Date: 20120323
  Receipt Date: 20110823
  Transmission Date: 20120825
  Serious: Yes (Hospitalization)
  Sender: FDA-Public Use
  Company Number: 163-21880-11082670

PATIENT
  Age: 68 Year
  Sex: Male

DRUGS (8)
  1. DEXAMETHASONE [Concomitant]
  2. ACYCLOVIR [Concomitant]
  3. NEULASTA [Concomitant]
  4. NEUPOGEN [Concomitant]
  5. REVLIMID [Suspect]
     Indication: MULTIPLE MYELOMA
  6. ZOMETA [Concomitant]
  7. ZOFRAN [Concomitant]
  8. ASPIRIN [Concomitant]

REACTIONS (1)
  - THROMBOSIS [None]
